FAERS Safety Report 12458798 (Version 2)
Quarter: 2016Q2

REPORT INFORMATION
  Report Type: Spontaneous
  Country: FR (occurrence: FR)
  Receive Date: 20160613
  Receipt Date: 20160630
  Transmission Date: 20160815
  Serious: Yes (Hospitalization, Other)
  Sender: FDA-Public Use
  Company Number: FR-PFIZER INC-2016287236

PATIENT
  Age: 61 Year
  Sex: Female

DRUGS (9)
  1. QUINAPRIL. [Concomitant]
     Active Substance: QUINAPRIL
  2. TIAPRIDAL /00435701/ [Concomitant]
     Active Substance: TIAPRIDE HYDROCHLORIDE
  3. VELMETIA [Concomitant]
     Active Substance: METFORMIN\SITAGLIPTIN
  4. PARACETAMOL [Concomitant]
     Active Substance: ACETAMINOPHEN
  5. PARIET [Concomitant]
     Active Substance: RABEPRAZOLE SODIUM
  6. NOCTAMIDE [Concomitant]
     Active Substance: LORMETAZEPAM
  7. LYRICA [Suspect]
     Active Substance: PREGABALIN
     Dosage: 150 MG, 2X/DAY
     Route: 048
     Dates: end: 20160519
  8. ACTISKENAN [Suspect]
     Active Substance: MORPHINE SULFATE
     Indication: PAIN
     Dosage: 10 MG, 1X/DAY
     Route: 048
     Dates: end: 20160519
  9. LEVOTHYROX [Concomitant]
     Active Substance: LEVOTHYROXINE

REACTIONS (13)
  - Hemiparesis [Unknown]
  - Metabolic encephalopathy [Unknown]
  - Aphasia [Unknown]
  - Toxic encephalopathy [Unknown]
  - Tremor [Unknown]
  - Dyskinesia [Unknown]
  - Tachycardia [Unknown]
  - Extrapyramidal disorder [Unknown]
  - Oxygen saturation decreased [Unknown]
  - Acute kidney injury [Recovering/Resolving]
  - Confusional state [Recovered/Resolved]
  - Somnolence [Unknown]
  - Overdose [Unknown]

NARRATIVE: CASE EVENT DATE: 20160517
